FAERS Safety Report 7248162-5 (Version None)
Quarter: 2011Q1

REPORT INFORMATION
  Report Type: 
  Country: None (occurrence: None)
  Receive Date: 20110127
  Receipt Date: 20101223
  Transmission Date: 20110831
  Serious: Yes (Hospitalization)
  Sender: FDA-Public Use
  Company Number: US-BAYER-201019911NA

PATIENT
  Sex: Female
  Weight: 61.224 kg

DRUGS (4)
  1. ATENOLOL [Concomitant]
     Dosage: UNK
     Route: 048
     Dates: start: 20050101
  2. YAZ [Suspect]
     Indication: PREMENSTRUAL SYNDROME
     Dosage: UNK UNK, UNK
     Route: 048
     Dates: start: 20070401, end: 20080423
  3. YASMIN [Suspect]
     Indication: PRODUCT USED FOR UNKNOWN INDICATION
  4. LANOXIN [Concomitant]
     Dosage: UNK UNK, QD
     Route: 048
     Dates: start: 20000101

REACTIONS (6)
  - CHEST DISCOMFORT [None]
  - INTRACARDIAC THROMBUS [None]
  - PULMONARY EMBOLISM [None]
  - VISUAL IMPAIRMENT [None]
  - DYSPNOEA [None]
  - DIZZINESS [None]
